FAERS Safety Report 21222001 (Version 1)
Quarter: 2022Q3

REPORT INFORMATION
  Report Type: Spontaneous
  Country: US (occurrence: US)
  Receive Date: 20220817
  Receipt Date: 20220817
  Transmission Date: 20221027
  Serious: No
  Sender: FDA-Public Use
  Company Number: US-SPECGX-T202200181

PATIENT
  Age: 59 Year
  Sex: Male
  Weight: 95 kg

DRUGS (1)
  1. ACETAMINOPHEN\OXYCODONE HYDROCHLORIDE [Suspect]
     Active Substance: ACETAMINOPHEN\OXYCODONE HYDROCHLORIDE
     Indication: Spinal operation
     Dosage: UNK (PRESCRIBED MEDICATION FOR EVERY SIX HOURS, HOWEVER, HE TOOK TWICE A DAY)
     Route: 065
     Dates: start: 202201

REACTIONS (5)
  - Thinking abnormal [Unknown]
  - Sleep disorder [Unknown]
  - Depression [Unknown]
  - Therapeutic product effect variable [Unknown]
  - Treatment noncompliance [Unknown]

NARRATIVE: CASE EVENT DATE: 20220101
